FAERS Safety Report 5127837-8 (Version None)
Quarter: 2006Q4

REPORT INFORMATION
  Report Type: 
  Country: None (occurrence: None)
  Receive Date: 20061016
  Receipt Date: 20061012
  Transmission Date: 20070319
  Serious: Yes (Other)
  Sender: FDA-Public Use
  Company Number: US-BRISTOL-MYERS SQUIBB COMPANY-13539325

PATIENT
  Age: 59 Year
  Sex: Female
  Weight: 68 kg

DRUGS (4)
  1. CORGARD [Suspect]
     Indication: HEART RATE IRREGULAR
  2. PROCARDIA [Concomitant]
  3. NITROGLYCERIN [Concomitant]
     Route: 060
  4. DIAZEPAM [Concomitant]

REACTIONS (2)
  - CHEST PAIN [None]
  - DYSPNOEA [None]
